FAERS Safety Report 4322853-8 (Version None)
Quarter: 2004Q1

REPORT INFORMATION
  Report Type: 
  Country: None (occurrence: None)
  Receive Date: 20040322
  Receipt Date: 20040316
  Transmission Date: 20041129
  Serious: Yes (Life-Threatening)
  Sender: FDA-Public Use
  Company Number: TCI2004A00269

PATIENT
  Age: 37 Year
  Sex: Female

DRUGS (9)
  1. LEUPROLIDE ACETATE [Suspect]
     Indication: UTERINE LEIOMYOMA
     Dosage: 1.88 MG (1.88 MG, 1 IN 28 D); SUBCUTANEOUS; 6 TIMES
     Route: 058
     Dates: start: 20030813, end: 20040109
  2. PREDNISOLONE [Concomitant]
  3. RANITIDINE HYDROCHLORIDE [Concomitant]
  4. CALANTAN (PRECIPITATED CALCIUM CARBONATE) (CALCIUM CARBONATE) (TABLETS [Concomitant]
  5. REBAMIPIDE (TABLETS) [Concomitant]
  6. SEVELAMER HYDROCHLORIDE (TABLESTS) [Concomitant]
  7. ISOSORBIDE MONONITRATE (TABLETS) [Concomitant]
  8. BROTIZOLAM (TABELTS) [Concomitant]
  9. ERYTHROPOIETIN (INJECTION) [Concomitant]

REACTIONS (5)
  - ASPIRATION BONE MARROW ABNORMAL [None]
  - BONE MARROW DEPRESSION [None]
  - MENOMETRORRHAGIA [None]
  - PANCYTOPENIA [None]
  - SJOGREN'S SYNDROME [None]
